FAERS Safety Report 18653798 (Version 1)
Quarter: 2020Q4

REPORT INFORMATION
  Report Type: Spontaneous
  Country: US (occurrence: US)
  Receive Date: 20201222
  Receipt Date: 20201222
  Transmission Date: 20210114
  Serious: Yes (Other)
  Sender: FDA-Public Use
  Company Number: None

PATIENT
  Age: 88 Year

DRUGS (1)
  1. VALSARTAN TAB 160MG [Suspect]
     Active Substance: VALSARTAN
     Dates: start: 20200821, end: 20200904

REACTIONS (2)
  - Feeling abnormal [None]
  - Sensation of foreign body [None]

NARRATIVE: CASE EVENT DATE: 20200904
